FAERS Safety Report 17705080 (Version 2)
Quarter: 2020Q2

REPORT INFORMATION
  Report Type: Spontaneous
  Country: US (occurrence: US)
  Receive Date: 20200424
  Receipt Date: 20200518
  Transmission Date: 20200714
  Serious: Yes (Other)
  Sender: FDA-Public Use
  Company Number: US-PFIZER INC-2020163483

PATIENT
  Age: 73 Year
  Sex: Female
  Weight: 55 kg

DRUGS (8)
  1. PROTEIN [Concomitant]
     Active Substance: PROTEIN
     Dosage: UNK
  2. STOOL SOFTENER (DOCUSATE) [Concomitant]
     Active Substance: DOCUSATE
     Dosage: 100 MG, UNK
  3. IBRANCE [Suspect]
     Active Substance: PALBOCICLIB
     Dosage: 125 MG, CYCLIC (1 DAILY FOR 21 DAYS)
     Route: 048
     Dates: start: 2020, end: 2020
  4. VITAMIN D3 [Concomitant]
     Active Substance: CHOLECALCIFEROL
     Dosage: 25 UG, UNK
  5. CALCIUM CARBONATE. [Concomitant]
     Active Substance: CALCIUM CARBONATE
     Dosage: UNK
  6. IRON [Concomitant]
     Active Substance: IRON
     Dosage: 18 MG, UNK
  7. LETROZOLE. [Concomitant]
     Active Substance: LETROZOLE
     Dosage: 2.5 MG, UNK
  8. IBRANCE [Suspect]
     Active Substance: PALBOCICLIB
     Indication: BREAST CANCER FEMALE
     Dosage: 125 MG, CYCLIC (ONCE DAILY 21 DAYS ON AND 7 DAYS OFF)
     Route: 048
     Dates: start: 20200404, end: 2020

REACTIONS (6)
  - Cataract [Unknown]
  - Feeling cold [Unknown]
  - Pyrexia [Unknown]
  - Fatigue [Unknown]
  - Sinusitis [Unknown]
  - White blood cell count decreased [Unknown]

NARRATIVE: CASE EVENT DATE: 2020
